FAERS Safety Report 24836734 (Version 1)
Quarter: 2025Q1

REPORT INFORMATION
  Report Type: Spontaneous
  Country: US (occurrence: US)
  Receive Date: 20250113
  Receipt Date: 20250113
  Transmission Date: 20250408
  Serious: Yes (Death, Hospitalization, Other)
  Sender: BAYER HEALTHCARE LLC
  Company Number: US-BAYER-2025A002980

PATIENT
  Age: 45 Year
  Sex: Female

DRUGS (4)
  1. ASPIRIN [Suspect]
     Active Substance: ASPIRIN
     Route: 048
  2. GLIPIZIDE [Suspect]
     Active Substance: GLIPIZIDE
  3. METFORMIN [Suspect]
     Active Substance: METFORMIN HYDROCHLORIDE
  4. ALPRAZOLAM [Suspect]
     Active Substance: ALPRAZOLAM

REACTIONS (3)
  - Toxicity to various agents [Fatal]
  - Completed suicide [Fatal]
  - Intentional overdose [Fatal]
